FAERS Safety Report 4829429-4 (Version None)
Quarter: 2005Q4

REPORT INFORMATION
  Report Type: 
  Country: None (occurrence: None)
  Receive Date: 20051116
  Receipt Date: 20051014
  Transmission Date: 20060501
  Serious: Yes (Hospitalization)
  Sender: FDA-Public Use
  Company Number: AU-MERCK-0510AUS00144

PATIENT
  Age: 66 Year
  Sex: Male

DRUGS (5)
  1. FOSAMAX [Suspect]
     Route: 048
     Dates: end: 20050701
  2. CALCIUM CARBONATE [Concomitant]
     Route: 065
  3. PROPRANOLOL HYDROCHLORIDE [Concomitant]
     Route: 065
  4. ERGOCALCIFEROL [Concomitant]
     Route: 065
  5. PIMECLONE HYDROCHLORIDE [Concomitant]
     Route: 065

REACTIONS (1)
  - TOOTH ABSCESS [None]
